FAERS Safety Report 15622040 (Version 1)
Quarter: 2018Q4

REPORT INFORMATION
  Report Type: Spontaneous
  Country: FR (occurrence: FR)
  Receive Date: 20181115
  Receipt Date: 20181115
  Transmission Date: 20190205
  Serious: Yes (Other)
  Sender: FDA-Public Use
  Company Number: FR-PFIZER INC-2018462756

PATIENT
  Age: 78 Year
  Sex: Female
  Weight: 42 kg

DRUGS (1)
  1. TOVIAZ [Suspect]
     Active Substance: FESOTERODINE FUMARATE
     Indication: BLADDER DISORDER
     Dosage: 4 MG, UNK
     Route: 048
     Dates: start: 20180503, end: 20180626

REACTIONS (3)
  - Cognitive disorder [Recovered/Resolved]
  - Anxiety [Recovered/Resolved]
  - Hallucination [Recovered/Resolved]

NARRATIVE: CASE EVENT DATE: 20180517
